FAERS Safety Report 19387322 (Version 2)
Quarter: 2021Q2

REPORT INFORMATION
  Report Type: Spontaneous
  Country: JP (occurrence: JP)
  Receive Date: 20210608
  Receipt Date: 20210617
  Transmission Date: 20210717
  Serious: Yes (Hospitalization, Other)
  Sender: FDA-Public Use
  Company Number: JP-BRISTOL-MYERS SQUIBB COMPANY-BMS-2021-040786

PATIENT
  Age: 66 Year
  Sex: Female
  Weight: 49 kg

DRUGS (4)
  1. ANTEBATE [Suspect]
     Active Substance: BETAMETHASONE DIPROPIONATE
     Indication: SCAR
     Dosage: UNK
     Route: 003
     Dates: start: 20180704
  2. LIDOCAINE HYDROCHLORIDE. [Concomitant]
     Active Substance: LIDOCAINE HYDROCHLORIDE
     Indication: PRODUCT USED FOR UNKNOWN INDICATION
     Dosage: UNK
     Route: 065
     Dates: start: 201906
  3. KENACORT?A [Suspect]
     Active Substance: TRIAMCINOLONE ACETONIDE
     Indication: SKIN GRAFT SCAR
     Dosage: 40 MILLIGRAM,ONCE PER MONTH,1A
     Route: 058
     Dates: start: 20190612, end: 20210407
  4. DRENISON [FLUDROXYCORTIDE] [Concomitant]
     Active Substance: FLURANDRENOLIDE
     Indication: SCAR
     Dosage: UNK
     Route: 003
     Dates: start: 20180704, end: 20190620

REACTIONS (2)
  - Adrenal suppression [Recovering/Resolving]
  - Type 2 diabetes mellitus [Recovering/Resolving]

NARRATIVE: CASE EVENT DATE: 20210317
